FAERS Safety Report 20727574 (Version 1)
Quarter: 2022Q2

REPORT INFORMATION
  Report Type: Spontaneous
  Country: US (occurrence: None)
  Receive Date: 20220419
  Receipt Date: 20220419
  Transmission Date: 20220721
  Serious: No
  Sender: FDA-Public Use
  Company Number: US-ROCHE-2911915

PATIENT
  Sex: Female

DRUGS (3)
  1. AVASTIN [Suspect]
     Active Substance: BEVACIZUMAB
     Indication: Product used for unknown indication
     Route: 065
  2. PREDNISONE [Concomitant]
     Active Substance: PREDNISONE
  3. ESTRADIOL [Concomitant]
     Active Substance: ESTRADIOL

REACTIONS (7)
  - Eye disorder [Unknown]
  - Ocular hyperaemia [Unknown]
  - Eye inflammation [Unknown]
  - Scleral oedema [Unknown]
  - Eye disorder [Unknown]
  - Vision blurred [Unknown]
  - Eye pain [Unknown]
